FAERS Safety Report 24989872 (Version 1)
Quarter: 2025Q1

REPORT INFORMATION
  Report Type: Spontaneous
  Country: US (occurrence: None)
  Receive Date: 20250219
  Receipt Date: 20250219
  Transmission Date: 20250408
  Serious: No
  Sender: FDA-CTU
  Company Number: None

PATIENT
  Age: 68 Year
  Sex: Male
  Weight: 63.5 kg

DRUGS (20)
  1. SPIRONOLACTONE [Suspect]
     Active Substance: SPIRONOLACTONE
     Indication: Cardiac disorder
     Route: 048
     Dates: start: 20250110, end: 20250111
  2. ALBUTEROL [Concomitant]
     Active Substance: ALBUTEROL
  3. XANAX [Concomitant]
     Active Substance: ALPRAZOLAM
  4. KLONOPIN [Suspect]
     Active Substance: CLONAZEPAM
  5. CLOPIDOGREL [Concomitant]
     Active Substance: CLOPIDOGREL BISULFATE
  6. COLCHICINE [Concomitant]
     Active Substance: COLCHICINE
  7. EMPAGLIFLOZIN [Concomitant]
     Active Substance: EMPAGLIFLOZIN
  8. FUROSEMIDE [Concomitant]
     Active Substance: FUROSEMIDE
  9. NORCO [Concomitant]
     Active Substance: ACETAMINOPHEN\HYDROCODONE BITARTRATE
  10. LOSARTAN [Concomitant]
     Active Substance: LOSARTAN
  11. METOPROLOL [Concomitant]
     Active Substance: METOPROLOL
  12. NIACIN [Concomitant]
     Active Substance: NIACIN
  13. TAMSULOSIN [Concomitant]
     Active Substance: TAMSULOSIN
  14. OMEPRAZOLE [Concomitant]
     Active Substance: OMEPRAZOLE
  15. JARDIANCE [Concomitant]
     Active Substance: EMPAGLIFLOZIN
  16. PROSTATE PLUS [Concomitant]
  17. VITAMIN D3 5000IU [Concomitant]
  18. VITAMIN C - 500MG [Concomitant]
  19. IRON [Concomitant]
     Active Substance: IRON
  20. MULTIVITAMIN MENS 50+ [Concomitant]

REACTIONS (4)
  - Dizziness [None]
  - Hypoaesthesia [None]
  - Paraesthesia [None]
  - Headache [None]

NARRATIVE: CASE EVENT DATE: 20250110
